FAERS Safety Report 9619230 (Version 5)
Quarter: 2014Q1

REPORT INFORMATION
  Report Type: Spontaneous
  Country: US (occurrence: US)
  Receive Date: 20131014
  Receipt Date: 20140103
  Transmission Date: 20141002
  Serious: Yes (Other)
  Sender: FDA-Public Use
  Company Number: US-PFIZER INC-2013290443

PATIENT
  Age: 55 Year
  Sex: Female
  Weight: 104 kg

DRUGS (24)
  1. PREMARIN [Suspect]
     Indication: VULVOVAGINAL DRYNESS
     Dosage: 1 G, 1X/DAY
     Route: 067
     Dates: start: 2010, end: 201309
  2. PREMARIN [Suspect]
     Indication: VAGINAL INFECTION
     Dosage: 1 G, 1X/DAY
     Route: 067
     Dates: start: 201310
  3. ONDANSETRON [Concomitant]
     Dosage: 8 MG, 3X/DAY
  4. VENLAFAXINE [Concomitant]
     Dosage: 25 MG, 2X/DAY
  5. OMEPRAZOLE [Concomitant]
     Dosage: 40 MG, 2X/DAY
  6. RANITIDINE [Concomitant]
     Dosage: 150 MG, 1X/DAY
  7. LISINOPRIL [Concomitant]
     Dosage: 10 MG, 1X/DAY
  8. GLIMEPIRIDE [Concomitant]
     Dosage: 4 MG, 2X/DAY
  9. ACTOS [Concomitant]
     Dosage: 30 MG, 1X/DAY
  10. HYDROCHLOROTHIAZIDE [Concomitant]
     Dosage: 12.5 MG, 1X/DAY
  11. TRICOR [Concomitant]
     Dosage: 145 MG, 1X/DAY
  12. TIZANIDINE [Concomitant]
     Dosage: 6 MG (BY TAKING ONE AND A HALF 4MG TABLET), 3X/DAY
  13. VITAMIN D [Concomitant]
     Dosage: 50000 MG, WEEKLY
  14. ALBUTEROL [Concomitant]
     Dosage: UNK, 2X/DAY
  15. SYMBICORT [Concomitant]
     Dosage: 4.5 MG, 2X/DAY
  16. PROVENTIL [Concomitant]
     Dosage: 6.7 MG, 2X/DAY
  17. AMBIEN [Concomitant]
     Dosage: 5 MG, 1X/DAY
  18. JANUVIA [Concomitant]
     Dosage: 100 MG, 1X/DAY
  19. DEPAKOTE [Concomitant]
     Dosage: 250 MG, 3X/DAY
  20. HYDROCODONE W/ACETAMINOPHEN [Concomitant]
     Dosage: 500 MG, 2X/DAY
  21. DOCUSATE [Concomitant]
     Dosage: 100 MG, 2X/DAY
  22. FIBER GUMMIES [Concomitant]
     Dosage: UNK, 2X/DAY
  23. EQUATE ALLERGY RELIEF [Concomitant]
     Dosage: UNK
  24. AMITIZA [Concomitant]
     Dosage: 24 MG, 2X/DAY

REACTIONS (4)
  - Escherichia infection [Unknown]
  - Helicobacter infection [Unknown]
  - Urinary tract infection [Unknown]
  - Fungal infection [Unknown]
